FAERS Safety Report 22632770 (Version 1)
Quarter: 2023Q2

REPORT INFORMATION
  Report Type: Spontaneous
  Country: US (occurrence: US)
  Receive Date: 20230623
  Receipt Date: 20230623
  Transmission Date: 20230722
  Serious: No
  Sender: FDA-Public Use
  Company Number: US-ABBVIE-5301535

PATIENT
  Sex: Female

DRUGS (2)
  1. LATISSE [Suspect]
     Active Substance: BIMATOPROST
     Indication: Product used for unknown indication
     Dosage: 5ML KITS; LOT NUMBER ON THE BOTTLE:390958; FORM STRENGTH: 0.3MG/ML
     Route: 065
  2. LATISSE [Suspect]
     Active Substance: BIMATOPROST
     Dosage: 3ML KITS; LOT NUMBER ON THE BOTTLE: 387977; FORM STRENGTH: 0.3MG/ML
     Route: 065

REACTIONS (1)
  - Adverse drug reaction [Unknown]
